FAERS Safety Report 8448014-9 (Version None)
Quarter: 2012Q2

REPORT INFORMATION
  Report Type: 
  Country: None (occurrence: None)
  Receive Date: 20120619
  Receipt Date: 20120611
  Transmission Date: 20120825
  Serious: Yes (Hospitalization)
  Sender: FDA-Public Use
  Company Number: US-BAYER-2012-058864

PATIENT
  Age: 39 Year
  Sex: Female

DRUGS (5)
  1. ZOFRAN [Concomitant]
  2. DILAUDID [Concomitant]
  3. BEYAZ [Suspect]
  4. TORADOL [Concomitant]
  5. IBUPROFEN (ADVIL) [Concomitant]

REACTIONS (1)
  - PULMONARY EMBOLISM [None]
